FAERS Safety Report 26106147 (Version 1)
Quarter: 2025Q4

REPORT INFORMATION
  Report Type: Report from Study
  Country: CA (occurrence: CA)
  Receive Date: 20251201
  Receipt Date: 20251201
  Transmission Date: 20260117
  Serious: Yes (Other)
  Sender: ABBVIE
  Company Number: CA-ABBVIE-6569908

PATIENT
  Sex: Male

DRUGS (1)
  1. BOTOX [Suspect]
     Active Substance: ONABOTULINUMTOXINA
     Indication: Migraine
     Dosage: TIME INTERVAL: AS NECESSARY: (1X200) INTERNATIONAL UNIT - EVERY 3 MONTH(S)
     Route: 065
     Dates: start: 20241001, end: 20241001

REACTIONS (2)
  - Spinal operation [Unknown]
  - Back pain [Unknown]
